FAERS Safety Report 22314031 (Version 2)
Quarter: 2023Q2

REPORT INFORMATION
  Report Type: Report from Study
  Country: US (occurrence: US)
  Receive Date: 20230512
  Receipt Date: 20230522
  Transmission Date: 20230722
  Serious: Yes (Other)
  Sender: FDA-Public Use
  Company Number: US-BAYER-2023A045079

PATIENT
  Age: 52 Year
  Sex: Male

DRUGS (1)
  1. STIVARGA [Suspect]
     Active Substance: REGORAFENIB
     Indication: Gastrointestinal stromal tumour
     Dosage: 160 MG, QD FOR 21 DAYS OF A 28-DAY CYCLE
     Route: 048
     Dates: start: 20230327, end: 20230413

REACTIONS (11)
  - Hypoaesthesia [Recovering/Resolving]
  - Gait inability [Recovering/Resolving]
  - Hypoaesthesia [Unknown]
  - Intervertebral disc protrusion [Unknown]
  - Diarrhoea [Recovered/Resolved]
  - Pain in extremity [Recovered/Resolved]
  - Somnolence [Not Recovered/Not Resolved]
  - Pain in extremity [Not Recovered/Not Resolved]
  - Paraesthesia [Not Recovered/Not Resolved]
  - Blood pressure increased [Not Recovered/Not Resolved]
  - Endodontic procedure [None]

NARRATIVE: CASE EVENT DATE: 20230327
